FAERS Safety Report 9566285 (Version 2)
Quarter: 2014Q1

REPORT INFORMATION
  Report Type: Spontaneous
  Country: LB (occurrence: LB)
  Receive Date: 20130930
  Receipt Date: 20140121
  Transmission Date: 20141002
  Serious: Yes (Other)
  Sender: FDA-Public Use
  Company Number: LB-VERTEX PHARMACEUTICALS INC-2013-010090

PATIENT
  Age: 52 Year
  Sex: Male

DRUGS (7)
  1. INCIVO [Suspect]
     Indication: HEPATITIS C
     Dosage: 750 MG, TID
     Route: 048
     Dates: start: 20121226, end: 20130110
  2. PEGINTERFERON ALFA-2A [Suspect]
     Indication: HEPATITIS C
     Dosage: DOSAGE FORM: INJECTION
     Route: 058
     Dates: start: 20121226, end: 20130104
  3. RIBAVIRIN [Suspect]
     Indication: HEPATITIS C
     Dosage: DOSAGE FORM: TABLET
     Route: 048
     Dates: start: 20121226, end: 20130104
  4. DIOVAN [Concomitant]
     Indication: HYPERTENSION
     Dosage: (80 MG, 2 IN 1 D)
  5. AMARYL [Concomitant]
     Indication: DIABETES MELLITUS
     Dosage: 3 MG, QD
  6. BLOPRESS [Concomitant]
     Indication: HYPERTENSION
     Dosage: 8 MG, QD
     Route: 048
  7. INDERAL [Concomitant]
     Indication: HYPERTENSION
     Dosage: 40 MG, QD

REACTIONS (1)
  - Rash [Recovered/Resolved]
